FAERS Safety Report 19211057 (Version 2)
Quarter: 2021Q2

REPORT INFORMATION
  Report Type: Report from Study
  Country: CO (occurrence: CO)
  Receive Date: 20210504
  Receipt Date: 20210610
  Transmission Date: 20210717
  Serious: Yes (Hospitalization, Other)
  Sender: FDA-Public Use
  Company Number: NVSC2021CO095367

PATIENT
  Age: 33 Year
  Sex: Female
  Weight: 60 kg

DRUGS (5)
  1. TRAMADOL HYDROCHLORIDE. [Concomitant]
     Active Substance: TRAMADOL HYDROCHLORIDE
     Indication: ANKYLOSING SPONDYLITIS
     Dosage: 50 MG, Q8H (ONE YEAR AGO)
     Route: 048
  2. ZERODOL [Concomitant]
     Indication: ANKYLOSING SPONDYLITIS
     Dosage: 200 MG, QD (ONE YEAR AGO)
     Route: 048
  3. METHOTREXATE. [Concomitant]
     Active Substance: METHOTREXATE
     Indication: ANKYLOSING SPONDYLITIS
     Dosage: 15 MG, QW (ONE YEAR AGO)
     Route: 058
  4. GABAPENTIN. [Suspect]
     Active Substance: GABAPENTIN
     Indication: SPINAL PAIN
     Dosage: 300 MG, Q8H (EVERY 8 HOURS)
     Route: 048
  5. COSENTYX [Suspect]
     Active Substance: SECUKINUMAB
     Indication: ANKYLOSING SPONDYLITIS
     Dosage: 150 MG, QMO
     Route: 058
     Dates: start: 2018

REACTIONS (5)
  - Swelling [Recovered/Resolved]
  - Blindness [Recovered/Resolved]
  - Spinal pain [Unknown]
  - Eye pain [Recovered/Resolved]
  - Optic neuritis [Recovered/Resolved]

NARRATIVE: CASE EVENT DATE: 20210418
